FAERS Safety Report 4737034-3 (Version None)
Quarter: 2005Q3

REPORT INFORMATION
  Report Type: 
  Country: None (occurrence: None)
  Receive Date: 20050804
  Receipt Date: 20050720
  Transmission Date: 20060218
  Serious: Yes (Other)
  Sender: FDA-Public Use
  Company Number: ENTC2005-0217

PATIENT

DRUGS (5)
  1. STALEVO 100 [Suspect]
  2. JUMEX [Suspect]
  3. SIFROL [Concomitant]
  4. MADOPAR [Concomitant]
  5. COMTAN [Concomitant]

REACTIONS (1)
  - SLEEP DISORDER [None]
